FAERS Safety Report 5398552-0 (Version None)
Quarter: 2007Q3

REPORT INFORMATION
  Report Type: 
  Country: None (occurrence: None)
  Receive Date: 20070726
  Receipt Date: 20070112
  Transmission Date: 20080115
  Serious: No
  Sender: FDA-Public Use
  Company Number: US-AMGEN-KDL184568

PATIENT
  Sex: Female

DRUGS (6)
  1. PROCRIT [Suspect]
     Indication: ANAEMIA OF MALIGNANT DISEASE
     Route: 058
     Dates: start: 20051001, end: 20060517
  2. NORVASC [Concomitant]
  3. ZOCOR [Concomitant]
  4. LASIX [Concomitant]
  5. NEURONTIN [Concomitant]
  6. PLAVIX [Concomitant]

REACTIONS (2)
  - ASTHENIA [None]
  - GASTROINTESTINAL HAEMORRHAGE [None]
